FAERS Safety Report 17208576 (Version 1)
Quarter: 2019Q4

REPORT INFORMATION
  Report Type: Spontaneous
  Country: US (occurrence: US)
  Receive Date: 20191227
  Receipt Date: 20191227
  Transmission Date: 20200122
  Serious: No
  Sender: FDA-Public Use
  Company Number: US-PFIZER INC-2019555601

PATIENT
  Age: 73 Year

DRUGS (1)
  1. PREMARIN [Suspect]
     Active Substance: ESTROGENS, CONJUGATED
     Indication: HYSTERECTOMY
     Dosage: UNK, ALTERNATE DAY(I WAS PUT BACK ON A LOW DOSE OF PREMARIN EVERY OTHER DAY)
     Dates: start: 1990

REACTIONS (2)
  - Off label use [Unknown]
  - Drug ineffective [Unknown]
